FAERS Safety Report 6100471-9 (Version None)
Quarter: 2009Q1

REPORT INFORMATION
  Report Type: 
  Country: None (occurrence: None)
  Receive Date: 20090303
  Receipt Date: 20090219
  Transmission Date: 20090719
  Serious: Yes (Hospitalization)
  Sender: FDA-Public Use
  Company Number: FR-PFIZER INC-2009171112

PATIENT

DRUGS (17)
  1. ATENOLOL [Suspect]
     Dosage: 50 MG, 1X/DAY
     Route: 048
     Dates: end: 20081201
  2. ATENOLOL [Suspect]
     Dosage: 50 MG, ALTERNATE DAY
     Route: 048
     Dates: start: 20081201
  3. AMLOR [Suspect]
     Dosage: UNK
     Route: 048
     Dates: end: 20081201
  4. LASIX [Suspect]
     Dosage: UNK
     Route: 048
     Dates: end: 20081201
  5. NEXIUM [Concomitant]
  6. NEORAL [Concomitant]
  7. EVEROLIMUS [Concomitant]
  8. OROCAL VITAMIN D [Concomitant]
  9. IMOVANE [Concomitant]
  10. LEVOTHYROX [Concomitant]
  11. ARANESP [Concomitant]
  12. AUGMENTIN [Concomitant]
  13. ARTELAC [Concomitant]
  14. RIVOTRIL [Concomitant]
  15. TAHOR [Concomitant]
  16. TRAMADOL HYDROCHLORIDE AND ACETAMINOPHEN [Concomitant]
  17. FOSAVANCE [Concomitant]

REACTIONS (2)
  - FALL [None]
  - ORTHOSTATIC HYPOTENSION [None]
